FAERS Safety Report 19747300 (Version 4)
Quarter: 2022Q2

REPORT INFORMATION
  Report Type: Report from Study
  Country: US (occurrence: US)
  Receive Date: 20210825
  Receipt Date: 20220421
  Transmission Date: 20220720
  Serious: No
  Sender: FDA-Public Use
  Company Number: NVSC2021US190516

PATIENT
  Sex: Female

DRUGS (2)
  1. ENTRESTO [Suspect]
     Active Substance: SACUBITRIL\VALSARTAN
     Indication: Product used for unknown indication
     Dosage: 1 DF, BID, (24/26MG)
     Route: 048
     Dates: start: 20210528
  2. ENTRESTO [Suspect]
     Active Substance: SACUBITRIL\VALSARTAN
     Dosage: 1 DOSAGE FORM, BID(49/51 MG)
     Route: 048
     Dates: start: 20210528

REACTIONS (9)
  - Dyspnoea [Recovering/Resolving]
  - Nasopharyngitis [Unknown]
  - Blood glucose decreased [Unknown]
  - Blood cholesterol decreased [Unknown]
  - Cough [Not Recovered/Not Resolved]
  - Dry mouth [Unknown]
  - Aphonia [Unknown]
  - Weight decreased [Unknown]
  - Product dose omission issue [Unknown]
